FAERS Safety Report 6520022-4 (Version None)
Quarter: 2009Q4

REPORT INFORMATION
  Report Type: 
  Country: None (occurrence: None)
  Receive Date: 20091229
  Receipt Date: 20091221
  Transmission Date: 20100525
  Serious: Yes (Other)
  Sender: FDA-Public Use
  Company Number: CA-ROCHE-667236

PATIENT
  Age: 21 Year
  Sex: Female

DRUGS (16)
  1. TAMIFLU [Suspect]
     Indication: INFLUENZA
     Route: 048
     Dates: start: 20091028, end: 20091101
  2. TAMIFLU [Suspect]
     Route: 048
     Dates: start: 20091105, end: 20091105
  3. FERROUS GLUCONATE [Concomitant]
     Dosage: DRUG: LB FERROUS GLUCONATE.
  4. NOVO-METOPROL [Concomitant]
     Dosage: DOSE: 50 MG, FREQUENCY: 2 TABLETS AT 10.00 AM AND 3.00 PM.
  5. NORVASC [Concomitant]
     Dosage: DOSE: 5 MG FREQUENCY: 1 AND 1/2 TABLET AT 10.00 AM.
  6. PROGRAF [Concomitant]
     Dosage: WHITE CAPSULE.
  7. PROGRAF [Concomitant]
     Dosage: YELLOW CAPSULE.
  8. APO-AMITRIPTYLINE [Concomitant]
     Dosage: DOSE: 10 MG, FREQUENCY: 3 TABLETS AT 10:00 PM.
  9. MAGNESIUM [Concomitant]
     Dosage: DRUG: JAMIESON MAGNESIUM. DOSE: 50 MG, FREQUENCY: 2 TABLETS AT THREE TIMES DAILY.
  10. SODIUM BICARBONATE [Concomitant]
     Dosage: DOSE: 325 MG, FREQUENCY: 3 TABLETS AT 3.00 PM DAILY.
  11. APO-PANTOPRAZOLE [Concomitant]
     Dosage: DRUG: APO-PANTOLOC
  12. ONDANSETRON [Concomitant]
     Dosage: DRUG: PMS-ONDANSETRON.
  13. ASPIRIN [Concomitant]
     Dosage: DRUG: LB ASA.
  14. GABAPENTIN [Concomitant]
  15. ZINC [Concomitant]
     Dosage: DRUG: JAMIESON ZINC.
  16. VITAMINE D [Concomitant]
     Dosage: DRUG: LB VITAMIN D

REACTIONS (1)
  - URINE OUTPUT DECREASED [None]
